FAERS Safety Report 5757585-2 (Version None)
Quarter: 2008Q2

REPORT INFORMATION
  Report Type: 
  Country: None (occurrence: None)
  Receive Date: 20080603
  Receipt Date: 20080522
  Transmission Date: 20081010
  Serious: Yes (Hospitalization, Other)
  Sender: FDA-Public Use
  Company Number: US-PFIZER INC-2008028503

PATIENT
  Sex: Male
  Weight: 136.1 kg

DRUGS (5)
  1. GEODON [Suspect]
     Indication: INTERMITTENT EXPLOSIVE DISORDER
     Dates: start: 20080221, end: 20080301
  2. XANAX [Suspect]
  3. OXYCODONE HCL [Suspect]
  4. DIAZEPAM [Suspect]
  5. PROLIXIN [Suspect]

REACTIONS (9)
  - ERECTILE DYSFUNCTION [None]
  - EXTRAPYRAMIDAL DISORDER [None]
  - INCISION SITE PAIN [None]
  - OEDEMA [None]
  - PHYSICAL ASSAULT [None]
  - POST PROCEDURAL HAEMATOMA [None]
  - PRIAPISM [None]
  - SUICIDE ATTEMPT [None]
  - WEIGHT INCREASED [None]
